FAERS Safety Report 12412733 (Version 1)
Quarter: 2016Q2

REPORT INFORMATION
  Report Type: Spontaneous
  Country: TR (occurrence: TR)
  Receive Date: 20160527
  Receipt Date: 20160527
  Transmission Date: 20160815
  Serious: Yes (Death, Other)
  Sender: FDA-Public Use
  Company Number: TR-MYLANLABS-2016M1022095

PATIENT

DRUGS (1)
  1. URSODEOXYCHOLIC ACID [Suspect]
     Active Substance: URSODIOL
     Indication: CHOLESTASIS
     Route: 065

REACTIONS (2)
  - Foetal exposure during pregnancy [Recovered/Resolved]
  - Foetal death [Fatal]
